FAERS Safety Report 5257088-8 (Version None)
Quarter: 2007Q1

REPORT INFORMATION
  Report Type: 
  Country: None (occurrence: None)
  Receive Date: 20070307
  Receipt Date: 20070305
  Transmission Date: 20070707
  Serious: Yes (Other)
  Sender: FDA-Public Use
  Company Number: US-BRISTOL-MYERS SQUIBB COMPANY-13700018

PATIENT
  Age: 44 Year
  Sex: Male

DRUGS (1)
  1. PACLITAXEL [Suspect]

REACTIONS (1)
  - CORONARY ARTERY ANEURYSM [None]
